FAERS Safety Report 7445476-0 (Version None)
Quarter: 2011Q2

REPORT INFORMATION
  Report Type: 
  Country: None (occurrence: None)
  Receive Date: 20110420
  Receipt Date: 20110407
  Transmission Date: 20111010
  Serious: Yes (Life-Threatening, Hospitalization)
  Sender: FDA-Public Use
  Company Number: 2011MA003565

PATIENT
  Age: 58 Year
  Sex: Female
  Weight: 62 kg

DRUGS (7)
  1. HALOTHANE [Concomitant]
  2. THIOPENTAL SODIUM [Concomitant]
  3. MEPERIDINE [Concomitant]
  4. BROMIDE [Concomitant]
  5. BUVIPICAINE [Concomitant]
  6. METOCLOPRAMIDE [Suspect]
     Dosage: 10 MG;1X;IV
     Route: 042
  7. VECURONIUM BROMIDE [Concomitant]

REACTIONS (11)
  - BLOOD PRESSURE INCREASED [None]
  - BRADYCARDIA [None]
  - PCO2 DECREASED [None]
  - PULSE ABSENT [None]
  - VITAL FUNCTIONS ABNORMAL [None]
  - DIASTOLIC DYSFUNCTION [None]
  - BLOOD PRESSURE DECREASED [None]
  - VENTRICULAR EXTRASYSTOLES [None]
  - ELECTROCARDIOGRAM T WAVE INVERSION [None]
  - CARDIAC ARREST [None]
  - DRUG INTERACTION [None]
